FAERS Safety Report 9466301 (Version 1)
Quarter: 2013Q3

REPORT INFORMATION
  Report Type: Spontaneous
  Country: US (occurrence: US)
  Receive Date: 20130820
  Receipt Date: 20130820
  Transmission Date: 20140515
  Serious: Yes (Other)
  Sender: FDA-Public Use
  Company Number: US-TEVA-426766USA

PATIENT
  Age: 58 Year
  Sex: Female

DRUGS (5)
  1. FENOFIBRATE [Suspect]
     Route: 048
     Dates: start: 20130622
  2. JANTOVEN [Interacting]
     Dosage: 7.5 MILLIGRAM DAILY;
     Route: 048
     Dates: start: 20130620
  3. JANTOVEN [Interacting]
     Dosage: 6 MG TAB, 1 TAB DAILY FOR 5 DAYS/1.5 TAB FOR OTHER 2 DAYS
     Dates: start: 2012
  4. JANTOVEN [Interacting]
     Dosage: 5 MILLIGRAM DAILY;
     Dates: start: 20130717
  5. PRAVASTATIN [Concomitant]
     Dates: start: 20130622

REACTIONS (3)
  - International normalised ratio increased [Unknown]
  - Contusion [Recovering/Resolving]
  - Drug interaction [Unknown]
